FAERS Safety Report 6482261-0 (Version None)
Quarter: 2009Q4

REPORT INFORMATION
  Report Type: 
  Country: None (occurrence: None)
  Receive Date: 20091208
  Receipt Date: 20090213
  Transmission Date: 20100525
  Serious: No
  Sender: FDA-Public Use
  Company Number: US-AMGEN-US320211

PATIENT
  Sex: Female
  Weight: 72.2 kg

DRUGS (1)
  1. ENBREL [Suspect]
     Indication: PSORIASIS
     Route: 058

REACTIONS (4)
  - BACK PAIN [None]
  - INJECTION SITE DISCOLOURATION [None]
  - PERINEAL CYST [None]
  - THERAPEUTIC RESPONSE DECREASED [None]
